FAERS Safety Report 18404614 (Version 1)
Quarter: 2020Q4

REPORT INFORMATION
  Report Type: Spontaneous
  Country: CN (occurrence: CN)
  Receive Date: 20201020
  Receipt Date: 20201020
  Transmission Date: 20210114
  Serious: Yes (Death, Hospitalization, Other)
  Sender: FDA-Public Use
  Company Number: CN-LUPIN PHARMACEUTICALS INC.-2020-07554

PATIENT
  Age: 2 Year
  Sex: Female
  Weight: 10 kg

DRUGS (16)
  1. TIENAM [Suspect]
     Active Substance: CILASTATIN SODIUM\IMIPENEM
     Indication: ANTIBIOTIC THERAPY
     Dosage: UNK
     Route: 065
  2. ITRACONAZOLE. [Suspect]
     Active Substance: ITRACONAZOLE
     Indication: ANTIFUNGAL TREATMENT
     Dosage: UNK (FIRST COURSE)
     Route: 065
  3. MEROPENEM. [Suspect]
     Active Substance: MEROPENEM
     Indication: ANTIBIOTIC THERAPY
     Dosage: UNK
     Route: 065
  4. METHYLPREDNISOLONE. [Concomitant]
     Active Substance: METHYLPREDNISOLONE
     Dosage: UNK (TAPERING GRADUALLY)
     Route: 065
  5. VANCOMYCIN HYDROCHLORIDE. [Suspect]
     Active Substance: VANCOMYCIN HYDROCHLORIDE
     Indication: ANTIBIOTIC THERAPY
     Dosage: UNK (FIRST COURSE)
     Route: 065
  6. VANCOMYCIN HYDROCHLORIDE. [Suspect]
     Active Substance: VANCOMYCIN HYDROCHLORIDE
     Dosage: UNK (SECOND COURSE)
     Route: 065
  7. CEFOTAXIME [Suspect]
     Active Substance: CEFOTAXIME SODIUM
     Indication: COUGH
     Dosage: UNK (PRESCRIBED CEFOTAXIME AGAIN FOR 5 DAYS)
     Route: 065
  8. METHYLPREDNISOLONE. [Concomitant]
     Active Substance: METHYLPREDNISOLONE
     Indication: SJS-TEN OVERLAP
     Dosage: 10 MILLIGRAM/KILOGRAM, QD
     Route: 065
  9. METHYLPREDNISOLONE. [Concomitant]
     Active Substance: METHYLPREDNISOLONE
     Dosage: 2 MILLIGRAM/KILOGRAM, QD
     Route: 065
  10. ITRACONAZOLE. [Suspect]
     Active Substance: ITRACONAZOLE
     Dosage: UNK (SECOND COURSE)
     Route: 065
  11. AZITHROMYCIN ANHYDROUS. [Concomitant]
     Active Substance: AZITHROMYCIN ANHYDROUS
     Indication: ANTIBIOTIC THERAPY
     Dosage: UNK
     Route: 065
  12. AZITHROMYCIN ANHYDROUS. [Concomitant]
     Active Substance: AZITHROMYCIN ANHYDROUS
     Indication: PYREXIA
  13. AMIKACIN. [Suspect]
     Active Substance: AMIKACIN
     Indication: ANTIBIOTIC THERAPY
     Dosage: UNK
     Route: 065
  14. METRONIDAZOLE. [Suspect]
     Active Substance: METRONIDAZOLE
     Indication: ANTIBIOTIC THERAPY
     Dosage: UNK
     Route: 065
  15. CEFOTAXIME [Suspect]
     Active Substance: CEFOTAXIME SODIUM
     Indication: ANTIBIOTIC THERAPY
     Dosage: UNK
     Route: 065
  16. IMMUNOGLOBULINS NOS [Concomitant]
     Active Substance: IMMUNE GLOBULIN NOS
     Indication: SJS-TEN OVERLAP
     Dosage: UNK 1 G/KG/D FOR 2 DAYS
     Route: 065

REACTIONS (21)
  - Acinetobacter infection [Fatal]
  - Hypoproteinaemia [Fatal]
  - Pneumonia [Fatal]
  - Acinetobacter test positive [Fatal]
  - Hepatomegaly [Fatal]
  - Candida infection [Fatal]
  - Liver injury [Fatal]
  - Klebsiella infection [Fatal]
  - Weight decreased [Fatal]
  - Gastrointestinal haemorrhage [Fatal]
  - Pseudomonas infection [Fatal]
  - Hypokalaemia [Fatal]
  - Multiple organ dysfunction syndrome [Fatal]
  - Gastrointestinal infection [Fatal]
  - Septic shock [Fatal]
  - Moraxella infection [Fatal]
  - Drug ineffective [Fatal]
  - Stevens-Johnson syndrome [Fatal]
  - Enterocolitis [Fatal]
  - Obliterative bronchiolitis [Fatal]
  - Malnutrition [Fatal]
